FAERS Safety Report 25949378 (Version 1)
Quarter: 2025Q4

REPORT INFORMATION
  Report Type: Spontaneous
  Country: US (occurrence: US)
  Receive Date: 20251022
  Receipt Date: 20251022
  Transmission Date: 20260118
  Serious: Yes (Hospitalization, Other)
  Sender: RECKITT BENCKISER
  Company Number: US-INDIVIOR UK LIMITED-INDV-178020-2025

PATIENT
  Age: 15 Year
  Sex: Male

DRUGS (6)
  1. BUPRENORPHINE [Suspect]
     Active Substance: BUPRENORPHINE
     Indication: Drug use disorder
     Dosage: UNK
     Route: 060
  2. BUPRENORPHINE\NALOXONE [Suspect]
     Active Substance: BUPRENORPHINE\NALOXONE
     Indication: Drug use disorder
     Dosage: 8 MILLIGRAM, QD
     Route: 060
  3. BUPRENORPHINE [Suspect]
     Active Substance: BUPRENORPHINE
     Indication: Drug use disorder
     Dosage: 300 MILLIGRAM, QMO
     Route: 065
  4. BUPRENORPHINE [Suspect]
     Active Substance: BUPRENORPHINE
  5. BUPRENORPHINE [Suspect]
     Active Substance: BUPRENORPHINE
     Indication: Drug use disorder
     Dosage: 100 MILLIGRAM, QMO
     Route: 065
  6. FENTANYL [Suspect]
     Active Substance: FENTANYL
     Indication: Product used for unknown indication
     Dosage: UNK
     Route: 042

REACTIONS (3)
  - Thrombophlebitis septic [Recovering/Resolving]
  - Product administered to patient of inappropriate age [Not Recovered/Not Resolved]
  - Drug abuse [Recovered/Resolved]
